FAERS Safety Report 15548489 (Version 1)
Quarter: 2018Q4

REPORT INFORMATION
  Report Type: Spontaneous
  Country: FR (occurrence: FR)
  Receive Date: 20181025
  Receipt Date: 20181025
  Transmission Date: 20190205
  Serious: Yes (Other)
  Sender: FDA-Public Use
  Company Number: FR-TEVA-2018-FR-968271

PATIENT
  Age: 36 Year
  Sex: Female

DRUGS (2)
  1. GABAPENTINE [Suspect]
     Active Substance: GABAPENTIN
     Indication: PAIN
     Route: 065
     Dates: end: 20180914
  2. BACLOFENE [Suspect]
     Active Substance: BACLOFEN
     Indication: QUADRIPLEGIA
     Route: 048
     Dates: end: 20180914

REACTIONS (3)
  - Withdrawal syndrome [Recovered/Resolved]
  - Hallucination [Recovered/Resolved]
  - Confusional state [Recovered/Resolved]

NARRATIVE: CASE EVENT DATE: 20180917
